FAERS Safety Report 10182926 (Version 2)
Quarter: 2014Q2

REPORT INFORMATION
  Report Type: Report from Study
  Country: US (occurrence: US)
  Receive Date: 20140520
  Receipt Date: 20140520
  Transmission Date: 20141212
  Serious: Yes (Disabling, Other)
  Sender: FDA-Public Use
  Company Number: US-PFIZER INC-2008033852

PATIENT
  Sex: Female
  Weight: 65.77 kg

DRUGS (15)
  1. LYRICA [Suspect]
     Indication: FIBROMYALGIA
     Dosage: 75 MG, 3X/DAY
     Route: 048
     Dates: start: 2006
  2. LYRICA [Suspect]
     Indication: INTERVERTEBRAL DISC DEGENERATION
  3. LYRICA [Suspect]
     Indication: ARTHROPATHY
  4. EFFEXOR XR [Suspect]
     Indication: MENOPAUSAL SYMPTOMS
     Dosage: UNK
  5. ATENOLOL [Concomitant]
  6. DIOVAN [Concomitant]
  7. PIROXICAM [Concomitant]
  8. KLONOPIN [Concomitant]
     Indication: ANXIETY
  9. BUSPAR [Concomitant]
  10. AMBIEN [Concomitant]
  11. ALLEGRA [Concomitant]
     Indication: HYPERSENSITIVITY
  12. CALCIUM [Concomitant]
  13. GLUCOSAMINE [Concomitant]
  14. VOLTAREN [Concomitant]
     Dosage: UNK
  15. LIDODERM [Concomitant]
     Dosage: UNK

REACTIONS (16)
  - Depression [Unknown]
  - Anxiety [Unknown]
  - Weight increased [Unknown]
  - Head injury [Unknown]
  - Road traffic accident [Unknown]
  - Pain [Not Recovered/Not Resolved]
  - Impaired work ability [Recovering/Resolving]
  - Macular degeneration [Not Recovered/Not Resolved]
  - Aneurysm [Not Recovered/Not Resolved]
  - Retinal tear [Unknown]
  - Euphoric mood [Recovered/Resolved]
  - Hypertension [Unknown]
  - Distractibility [Recovered/Resolved]
  - Feeling abnormal [Recovered/Resolved]
  - Feeling drunk [Recovered/Resolved]
  - Photopsia [Unknown]
